FAERS Safety Report 16278598 (Version 1)
Quarter: 2019Q2

REPORT INFORMATION
  Report Type: Report from Study
  Country: PA (occurrence: PA)
  Receive Date: 20190506
  Receipt Date: 20190506
  Transmission Date: 20190711
  Serious: Yes (Other)
  Sender: FDA-Public Use
  Company Number: PHHY2019PA102413

PATIENT
  Age: 66 Year
  Sex: Male

DRUGS (1)
  1. GALVUS MET [Suspect]
     Active Substance: METFORMIN HYDROCHLORIDE\VILDAGLIPTIN
     Indication: PRODUCT USED FOR UNKNOWN INDICATION
     Dosage: (METFORMIN 1000MG, VILDAGLIPTIN 50MG)
     Route: 065

REACTIONS (4)
  - Blood glucose increased [Unknown]
  - Ulcer [Unknown]
  - Angina unstable [Unknown]
  - Blood pressure increased [Unknown]
